FAERS Safety Report 4348637-2 (Version None)
Quarter: 2004Q2

REPORT INFORMATION
  Report Type: 
  Country: None (occurrence: None)
  Receive Date: 20040423
  Receipt Date: 20040413
  Transmission Date: 20050107
  Serious: Yes (Life-Threatening, Hospitalization, Other)
  Sender: FDA-Public Use
  Company Number: FRWYE700513APR04

PATIENT
  Age: 24 Year
  Sex: Male

DRUGS (1)
  1. EFFEXOR [Suspect]
     Dosage: ORAL
     Route: 048
     Dates: start: 20031201, end: 20040301

REACTIONS (5)
  - AGRANULOCYTOSIS [None]
  - CANDIDIASIS [None]
  - LYMPHOPENIA [None]
  - PSEUDOMONAS INFECTION [None]
  - TONSILLITIS [None]
